FAERS Safety Report 9637900 (Version 3)
Quarter: 2013Q4

REPORT INFORMATION
  Report Type: Spontaneous
  Country: US (occurrence: US)
  Receive Date: 20131022
  Receipt Date: 20131029
  Transmission Date: 20140711
  Serious: Yes (Other)
  Sender: FDA-Public Use
  Company Number: US-GILEAD-2013-0083124

PATIENT
  Age: 39 Year
  Sex: Female

DRUGS (4)
  1. LETAIRIS [Suspect]
     Indication: PULMONARY ARTERIAL HYPERTENSION
     Dosage: 10 MG, QD
     Dates: start: 20120803
  2. LETAIRIS [Suspect]
     Indication: ATRIAL SEPTAL DEFECT
  3. REMODULIN [Suspect]
     Indication: PRODUCT USED FOR UNKNOWN INDICATION
  4. ADCIRCA [Concomitant]

REACTIONS (5)
  - Haemorrhage [Unknown]
  - Infusion site pain [Unknown]
  - Infusion site erythema [Unknown]
  - Laceration [Unknown]
  - Flushing [Unknown]
